FAERS Safety Report 10417726 (Version 1)
Quarter: 2014Q2

REPORT INFORMATION
  Report Type: Spontaneous
  Country: US (occurrence: None)
  Receive Date: 20140609
  Receipt Date: 20140609
  Transmission Date: 20141212
  Serious: Yes (Other)
  Sender: FDA-Public Use
  Company Number: 2014TUS002391

PATIENT
  Sex: 0

DRUGS (1)
  1. BRINTELLIX [Suspect]

REACTIONS (1)
  - Serotonin syndrome [None]
